FAERS Safety Report 4266815-8 (Version None)
Quarter: 2004Q1

REPORT INFORMATION
  Report Type: 
  Country: None (occurrence: None)
  Receive Date: 20040108
  Receipt Date: 20030522
  Transmission Date: 20041129
  Serious: No
  Sender: FDA-Public Use
  Company Number: US-GLAXOSMITHKLINE-A0409481A

PATIENT
  Sex: Female

DRUGS (2)
  1. EPIVIR-HBV [Suspect]
     Indication: HEPATITIS B
     Route: 048
     Dates: start: 20030101
  2. BLOOD PRESSURE MEDICATION [Concomitant]

REACTIONS (1)
  - NAUSEA [None]
